FAERS Safety Report 4785928-5 (Version None)
Quarter: 2005Q3

REPORT INFORMATION
  Report Type: 
  Country: None (occurrence: None)
  Receive Date: 20050930
  Receipt Date: 20050930
  Transmission Date: 20060218
  Serious: No
  Sender: FDA-Public Use
  Company Number: None

PATIENT
  Sex: Female

DRUGS (2)
  1. AVELOX [Suspect]
     Dosage: PO
     Route: 048
     Dates: start: 20050926, end: 20051003
  2. PAMPRIN TAB [Suspect]
     Dosage: PO
     Route: 048

REACTIONS (2)
  - ANXIETY [None]
  - FLUSHING [None]
